FAERS Safety Report 13784379 (Version 2)
Quarter: 2017Q3

REPORT INFORMATION
  Report Type: Spontaneous
  Country: US (occurrence: US)
  Receive Date: 20170724
  Receipt Date: 20170727
  Transmission Date: 20171127
  Serious: No
  Sender: FDA-Public Use
  Company Number: US-009507513-1707USA009277

PATIENT
  Sex: Female

DRUGS (8)
  1. LIDOCAINE. [Concomitant]
     Active Substance: LIDOCAINE
  2. INTRON A [Suspect]
     Active Substance: INTERFERON ALFA-2B
     Indication: BLADDER CANCER
     Dosage: 300,000 UNITS (0.05 ML), THREE DAYS A WEEK MONDAY, WEDNESDAY AND FRIDAY
     Route: 023
  3. ONDANSETRON [Concomitant]
     Active Substance: ONDANSETRON
  4. LACTULOSE. [Concomitant]
     Active Substance: LACTULOSE
     Dosage: STRENGTH: 10 G / 15 ML
  5. PROCHLORPERAZINE. [Concomitant]
     Active Substance: PROCHLORPERAZINE
     Route: 048
  6. ESTRACE [Concomitant]
     Active Substance: ESTRADIOL
     Dosage: STRENGTH: 0.1 MG/GM
  7. AMLODIPINE [Concomitant]
     Active Substance: AMLODIPINE BESYLATE
     Route: 048
  8. PRINIVIL [Concomitant]
     Active Substance: LISINOPRIL
     Route: 048

REACTIONS (1)
  - Fatigue [Not Recovered/Not Resolved]
